FAERS Safety Report 12596123 (Version 2)
Quarter: 2017Q1

REPORT INFORMATION
  Report Type: Report from Study
  Country: US (occurrence: US)
  Receive Date: 20160726
  Receipt Date: 20170126
  Transmission Date: 20170428
  Serious: Yes (Death, Other)
  Sender: FDA-Public Use
  Company Number: US-AMGEN-USASL2015109520

PATIENT
  Age: 71 Year
  Sex: Male

DRUGS (1)
  1. KYPROLIS [Suspect]
     Active Substance: CARFILZOMIB
     Indication: PLASMA CELL MYELOMA
     Dosage: UNK UNK, 2 TIMES/WK
     Route: 065
     Dates: end: 201603

REACTIONS (8)
  - Inappropriate schedule of drug administration [Unknown]
  - Plasma cell myeloma [Fatal]
  - Creatinine urine increased [Unknown]
  - Protein urine present [Unknown]
  - Protein total increased [Unknown]
  - Fatigue [Unknown]
  - Psychomotor hyperactivity [Unknown]
  - Adverse event [Unknown]

NARRATIVE: CASE EVENT DATE: 2016
